FAERS Safety Report 5069404-0 (Version None)
Quarter: 2006Q3

REPORT INFORMATION
  Report Type: 
  Country: None (occurrence: None)
  Receive Date: 20060714
  Receipt Date: 20060327
  Transmission Date: 20061208
  Serious: No
  Sender: FDA-Public Use
  Company Number: 2006SP001403

PATIENT
  Age: 84 Year
  Sex: Female
  Weight: 63.5036 kg

DRUGS (2)
  1. LUNESTA [Suspect]
     Indication: INSOMNIA
     Dosage: 2 MG;ORAL
     Route: 048
     Dates: start: 20050901, end: 20050101
  2. ANTIHYPERTENSIVES [Concomitant]

REACTIONS (3)
  - ABNORMAL DREAMS [None]
  - DEMENTIA [None]
  - HALLUCINATION [None]
